FAERS Safety Report 10149974 (Version 1)
Quarter: 2014Q2

REPORT INFORMATION
  Report Type: Spontaneous
  Country: US (occurrence: US)
  Receive Date: 20140502
  Receipt Date: 20140502
  Transmission Date: 20141212
  Serious: Yes (Other)
  Sender: FDA-Public Use
  Company Number: US-JNJFOC-20140417993

PATIENT
  Age: 77 Year
  Sex: Male

DRUGS (3)
  1. INVOKANA [Suspect]
     Indication: TYPE 2 DIABETES MELLITUS
     Dates: start: 201306
  2. GLIMEPIRIDE [Concomitant]
     Indication: TYPE 2 DIABETES MELLITUS
     Route: 048
  3. HYDROCHLOROTHIAZIDE [Concomitant]
     Indication: HYPERTENSION

REACTIONS (3)
  - Weight decreased [Not Recovered/Not Resolved]
  - Urine output increased [Not Recovered/Not Resolved]
  - Blood calcium decreased [Not Recovered/Not Resolved]
